FAERS Safety Report 9975843 (Version 32)
Quarter: 2021Q3

REPORT INFORMATION
  Report Type: Spontaneous
  Country: US (occurrence: US)
  Receive Date: 20140306
  Receipt Date: 20210802
  Transmission Date: 20211014
  Serious: Yes (Hospitalization, Other)
  Sender: FDA-Public Use
  Company Number: US-PFIZER INC-2014063791

PATIENT
  Age: 83 Year
  Sex: Female
  Weight: 86 kg

DRUGS (39)
  1. NORVASC [Suspect]
     Active Substance: AMLODIPINE BESYLATE
     Indication: BLOOD PRESSURE INCREASED
     Dosage: 10 MG
     Route: 048
     Dates: start: 2006
  2. NORVASC [Suspect]
     Active Substance: AMLODIPINE BESYLATE
     Dosage: 5 MG, 2X/DAY
  3. PLAVIX [Concomitant]
     Active Substance: CLOPIDOGREL BISULFATE
     Indication: ANTICOAGULANT THERAPY
     Dosage: 75 MG, 1X/DAY
     Dates: start: 2006
  4. XALATAN [Suspect]
     Active Substance: LATANOPROST
     Dosage: UNK, ALTERNATE DAY (125 MCG/ 2.5 ML, EVERY OTHER DAY / EVERY OTHER NIGHT)
     Route: 047
  5. XALATAN [Suspect]
     Active Substance: LATANOPROST
     Dosage: 1 DROP GTT, DAILY
     Route: 047
  6. ONE?A?DAY NOS [Concomitant]
     Active Substance: MINERALS\VITAMINS
     Indication: VITAMIN SUPPLEMENTATION
     Dosage: UNK
  7. OSTEO BI?FLEX [Concomitant]
     Active Substance: CHONDROITIN SULFATE A\GLUCOSAMINE
     Dosage: UNK
  8. METOPROLOL SUCCINATE. [Concomitant]
     Active Substance: METOPROLOL SUCCINATE
     Indication: BLOOD PRESSURE ABNORMAL
     Dosage: UNK
  9. NITROGLYCERIN. [Concomitant]
     Active Substance: NITROGLYCERIN
     Indication: CARDIAC DISORDER
     Dosage: UNK
  10. CLEOCIN [Concomitant]
     Active Substance: CLINDAMYCIN PHOSPHATE
     Dosage: 300 MG
  11. XALATAN [Suspect]
     Active Substance: LATANOPROST
     Indication: INFECTION
     Dosage: 2 DROP (GTT), ONCE A DAY (ONE DROP IN BOTH EYES AT BEDTIME; STRENGTH: 125/2.5 UG/ML)
     Route: 047
  12. XALATAN [Suspect]
     Active Substance: LATANOPROST
     Dosage: 1 DROP, 1X/DAY (ONE DROP IN EACH EYE NIGHTLY)
     Route: 047
  13. XALATAN [Suspect]
     Active Substance: LATANOPROST
     Dosage: 1 GTT, UNK
     Route: 047
  14. DHA [Concomitant]
     Active Substance: DIETARY SUPPLEMENT
     Dosage: 1000 MG, 1X/DAY
  15. XALATAN [Suspect]
     Active Substance: LATANOPROST
     Indication: GLAUCOMA
     Dosage: 1 DROP (GTT), ONCE A DAY (AT NIGHT; STRENGTH: 125/2.5 UG/ML)
     Route: 047
     Dates: start: 2015
  16. XALATAN [Suspect]
     Active Substance: LATANOPROST
     Indication: INTRAOCULAR PRESSURE INCREASED
     Dosage: 50 UG, UNK (STRENGTH: 50 UG)
     Route: 047
  17. LISINOPRIL. [Suspect]
     Active Substance: LISINOPRIL
     Dosage: UNK
  18. VITAMIN D3 [Concomitant]
     Active Substance: CHOLECALCIFEROL
     Dosage: UNK
  19. XALATAN [Suspect]
     Active Substance: LATANOPROST
     Dosage: UNK (1.25 MG, 2.5 ML)
  20. NORVASC [Suspect]
     Active Substance: AMLODIPINE BESYLATE
     Indication: HYPERTENSION
     Dosage: 5 MG, DAILY
     Route: 048
     Dates: start: 20181121
  21. NORVASC [Suspect]
     Active Substance: AMLODIPINE BESYLATE
     Dosage: UNK, 2X/DAY [TAKE A HALF OF ONE/SOMETIMES I TAKE 3]
     Route: 048
  22. GLUCOPHAGE [Concomitant]
     Active Substance: METFORMIN HYDROCHLORIDE
     Dosage: 500 MG, 1X/DAY
  23. NITROSTAT [Concomitant]
     Active Substance: NITROGLYCERIN
     Dosage: UNK, AS NEEDED
  24. FLECTOR [Concomitant]
     Active Substance: DICLOFENAC EPOLAMINE
     Dosage: UNK
  25. LIPITOR [Suspect]
     Active Substance: ATORVASTATIN CALCIUM
     Dosage: 20 MG
  26. XALATAN [Suspect]
     Active Substance: LATANOPROST
     Indication: CATARACT
     Dosage: 2.5 MG, UNK (STRENGTH: 0.005 %)
     Route: 047
  27. NORVASC [Suspect]
     Active Substance: AMLODIPINE BESYLATE
     Dosage: 5 MG, DAILY
     Route: 048
  28. NORVASC [Suspect]
     Active Substance: AMLODIPINE BESYLATE
     Dosage: 2.5 UNK (SOMETIMES ONLY TAKE ONE HALF OF MY PILL OF NORVASC)
     Route: 048
  29. NEXIUM [Concomitant]
     Active Substance: ESOMEPRAZOLE MAGNESIUM
     Indication: LARYNGEAL DISORDER
  30. ASPIRIN [ACETYLSALICYLIC ACID] [Concomitant]
     Active Substance: ASPIRIN
     Dosage: 81 MG, UNK
  31. NEXIUM [Concomitant]
     Active Substance: ESOMEPRAZOLE MAGNESIUM
     Indication: ABDOMINAL DISCOMFORT
     Dosage: 40 MG, 1X/DAY
  32. PROBIOTIC [Concomitant]
     Active Substance: PROBIOTICS NOS
     Indication: GASTROINTESTINAL DISORDER
     Dosage: UNK
  33. VITAMIN E [Concomitant]
     Active Substance: .ALPHA.-TOCOPHEROL
     Dosage: UNK
  34. ASA [Concomitant]
     Active Substance: ASPIRIN
     Dosage: 81 MG, 1X/DAY
  35. NITROSTAT [Concomitant]
     Active Substance: NITROGLYCERIN
     Dosage: UNK
  36. LIPITOR [Suspect]
     Active Substance: ATORVASTATIN CALCIUM
     Indication: BLOOD CHOLESTEROL ABNORMAL
     Dosage: 40 MG, ONCE A DAY (AT BEDTIME)
     Route: 048
     Dates: start: 2006
  37. LIPITOR [Suspect]
     Active Substance: ATORVASTATIN CALCIUM
     Indication: BLOOD PRESSURE INCREASED
     Dosage: 40 MG, ONCE A DAY (AT BEDTIME)
     Route: 048
     Dates: start: 2006
  38. XALATAN [Suspect]
     Active Substance: LATANOPROST
     Dosage: 125 UG
     Route: 047
     Dates: start: 2006
  39. TOPROL XL [Concomitant]
     Active Substance: METOPROLOL SUCCINATE
     Indication: BLOOD PRESSURE ABNORMAL
     Dosage: 25 MG, 2X/DAY (ONE IN THE MORNING AND ONE AT NIGHT)
     Dates: start: 2006

REACTIONS (60)
  - Back injury [Unknown]
  - Balance disorder [Unknown]
  - Intraocular pressure increased [Unknown]
  - Dyspnoea [Unknown]
  - Ligament rupture [Unknown]
  - Swelling [Unknown]
  - Palpitations [Unknown]
  - Productive cough [Unknown]
  - Concussion [Unknown]
  - Sinusitis [Unknown]
  - Haemoptysis [Unknown]
  - Memory impairment [Unknown]
  - Fatigue [Unknown]
  - Psychomotor hyperactivity [Unknown]
  - Stent malfunction [Unknown]
  - Nasal discomfort [Unknown]
  - Eye infection [Unknown]
  - Wrong technique in product usage process [Unknown]
  - Dizziness [Unknown]
  - Carotid artery occlusion [Unknown]
  - Condition aggravated [Unknown]
  - Limb discomfort [Not Recovered/Not Resolved]
  - Weight increased [Unknown]
  - Hypoaesthesia [Unknown]
  - Respiratory tract infection viral [Unknown]
  - Oral pain [Unknown]
  - Ear infection viral [Unknown]
  - Cardiovascular disorder [Unknown]
  - Malaise [Unknown]
  - Speech disorder [Unknown]
  - Hand fracture [Unknown]
  - Fall [Unknown]
  - Blindness [Unknown]
  - Flushing [Recovered/Resolved]
  - Weight decreased [Unknown]
  - Arthropathy [Not Recovered/Not Resolved]
  - Stress [Unknown]
  - Tremor [Unknown]
  - Head discomfort [Unknown]
  - Sinus disorder [Unknown]
  - Device occlusion [Unknown]
  - Off label use [Unknown]
  - Transient ischaemic attack [Unknown]
  - Hip fracture [Unknown]
  - Cardiac failure congestive [Unknown]
  - Meningioma [Unknown]
  - Road traffic accident [Unknown]
  - Epistaxis [Unknown]
  - Tooth fracture [Unknown]
  - Gait disturbance [Unknown]
  - Nasal congestion [Unknown]
  - Limb injury [Unknown]
  - Intentional product misuse [Unknown]
  - Body height decreased [Unknown]
  - Hypotension [Unknown]
  - Vertigo [Unknown]
  - Cerebrovascular accident [Unknown]
  - Choking [Unknown]
  - Accidental underdose [Unknown]
  - Pain [Unknown]

NARRATIVE: CASE EVENT DATE: 2013
